FAERS Safety Report 13098412 (Version 1)
Quarter: 2017Q1

REPORT INFORMATION
  Report Type: Spontaneous
  Country: GB (occurrence: GB)
  Receive Date: 20170109
  Receipt Date: 20170109
  Transmission Date: 20170428
  Serious: Yes (Other)
  Sender: FDA-Public Use
  Company Number: GB-TEVA-727384ACC

PATIENT
  Sex: Female

DRUGS (1)
  1. LEVETIRACETAM. [Suspect]
     Active Substance: LEVETIRACETAM
     Indication: PRODUCT USED FOR UNKNOWN INDICATION
     Dosage: UNK
     Dates: start: 20120220, end: 201208

REACTIONS (3)
  - Generalised tonic-clonic seizure [Unknown]
  - Seizure [Unknown]
  - Abnormal behaviour [Unknown]

NARRATIVE: CASE EVENT DATE: 2012
